APPROVED DRUG PRODUCT: TYVASO DPI
Active Ingredient: TREPROSTINIL
Strength: 0.048MG/INH
Dosage Form/Route: POWDER;INHALATION
Application: N214324 | Product #003
Applicant: UNITED THERAPEUTICS CORP
Approved: May 23, 2022 | RLD: Yes | RS: Yes | Type: RX

PATENTS:
Patent 11357782 | Expires: May 14, 2027
Patent 11826327 | Expires: Feb 3, 2042
Patent 9593066 | Expires: Dec 15, 2028
Patent 10421729 | Expires: Apr 1, 2035
Patent 10772883 | Expires: Jun 11, 2030
Patent 11723887 | Expires: Dec 15, 2028